FAERS Safety Report 11549796 (Version 2)
Quarter: 2016Q1

REPORT INFORMATION
  Report Type: Spontaneous
  Country: US (occurrence: US)
  Receive Date: 20150924
  Receipt Date: 20160120
  Transmission Date: 20160525
  Serious: No
  Sender: FDA-Public Use
  Company Number: US-INCYTE CORPORATION-2015IN002334

PATIENT
  Age: 59 Year
  Sex: Male
  Weight: 72.56 kg

DRUGS (19)
  1. TRILEPTAL [Concomitant]
     Active Substance: OXCARBAZEPINE
     Dosage: 150 MG, QD
     Route: 048
  2. RESTASIS [Concomitant]
     Active Substance: CYCLOSPORINE
     Dosage: 0.05% Q DROP INTO BOTH EYES AS NEEDED
  3. ASPIRIN. [Concomitant]
     Active Substance: ASPIRIN
     Dosage: 81 MG, QD
     Route: 048
  4. MULTIVITAMIN                       /07504101/ [Concomitant]
     Active Substance: VITAMINS
     Dosage: 1 DF, QD
  5. XANAX [Concomitant]
     Active Substance: ALPRAZOLAM
     Dosage: 1 MG NIGHTLY AS NEEDED
     Route: 048
  6. VITAMIN D3 [Concomitant]
     Active Substance: CHOLECALCIFEROL
     Dosage: 5000 U, QD
     Route: 048
  7. JAKAFI [Suspect]
     Active Substance: RUXOLITINIB
     Dosage: 10 MG, BID
     Route: 048
     Dates: start: 201504
  8. DESYREL [Concomitant]
     Active Substance: TRAZODONE HYDROCHLORIDE
     Dosage: 50 MG NIGHTLY
     Route: 048
  9. JAKAFI [Suspect]
     Active Substance: RUXOLITINIB
     Indication: MYELOFIBROSIS
     Dosage: 5 MG, QD
     Dates: start: 201503, end: 201504
  10. MYCOSTATIN [Concomitant]
     Active Substance: NYSTATIN
     Dosage: 100,000 UNITS/ML, SWISH AND SWALLOW 5ML FOUR TIMES DAILY
  11. ZESTRIL [Concomitant]
     Active Substance: LISINOPRIL
     Dosage: 20 MG, QD
     Route: 048
  12. GLUTAMINE [Concomitant]
     Active Substance: GLUTAMINE
     Dosage: 500 MG, QD
  13. ZOLOFT [Concomitant]
     Active Substance: SERTRALINE HYDROCHLORIDE
     Dosage: 50 MG, QD
     Route: 048
  14. XANAX [Concomitant]
     Active Substance: ALPRAZOLAM
     Indication: INSOMNIA
     Dosage: 0.25 MG, QID
     Route: 048
  15. BIOTIN [Concomitant]
     Active Substance: BIOTIN
     Dosage: 5000 MCG, QD
     Route: 048
  16. QUESTRAN [Concomitant]
     Active Substance: CHOLESTYRAMINE
     Dosage: 4 G PACKET DAILY
     Route: 048
  17. ACIPHEX [Concomitant]
     Active Substance: RABEPRAZOLE SODIUM
     Dosage: 20 MG TWO TIMES DAILY
     Route: 048
  18. IRON [Concomitant]
     Active Substance: IRON
     Dosage: UNK, UNK
     Dates: end: 20150327
  19. WHEY DRIED [Concomitant]
     Dosage: UKN, DAILY
     Route: 048

REACTIONS (15)
  - Candida infection [Unknown]
  - Cough [Unknown]
  - Musculoskeletal pain [Unknown]
  - Contusion [Unknown]
  - Fatigue [Not Recovered/Not Resolved]
  - Thrombocytopenia [Unknown]
  - Iron deficiency [Unknown]
  - Blood erythropoietin decreased [Unknown]
  - Diarrhoea [Unknown]
  - Anxiety [Unknown]
  - Pain [Unknown]
  - Platelet count increased [Unknown]
  - Haematocrit increased [Unknown]
  - Dyspnoea [Unknown]
  - Hyperhidrosis [Unknown]

NARRATIVE: CASE EVENT DATE: 20150501
